FAERS Safety Report 9461636 (Version 1)
Quarter: 2013Q3

REPORT INFORMATION
  Report Type: Spontaneous
  Country: JP (occurrence: None)
  Receive Date: 20130813
  Receipt Date: 20130813
  Transmission Date: 20140515
  Serious: Yes (Other)
  Sender: FDA-Public Use
  Company Number: FK201303196

PATIENT
  Age: 60 Year
  Sex: Female

DRUGS (4)
  1. LEUCOVORIN CALCIUM (LEUCOVORIN CALCIUM) [Suspect]
     Indication: METASTASES TO LIVER
     Dates: start: 200802, end: 200904
  2. FLUOROURACIL (FLUOROURACIL) [Suspect]
     Indication: METASTASES TO LIVER
     Route: 040
     Dates: start: 200802, end: 200904
  3. OXALIPLATIN (OXALIPLATIN) [Suspect]
     Indication: METASTASES TO LIVER
     Dates: start: 200802, end: 200904
  4. IRINOTECAN (IRINOTECAN) [Suspect]
     Indication: METASTASES TO LIVER
     Dates: start: 200904, end: 200906

REACTIONS (5)
  - Neuropathy peripheral [None]
  - Decreased appetite [None]
  - Stomatitis [None]
  - Alopecia [None]
  - Nausea [None]
